FAERS Safety Report 23387634 (Version 1)
Quarter: 2024Q1

REPORT INFORMATION
  Report Type: Other
  Country: SE (occurrence: None)
  Receive Date: 20240110
  Receipt Date: 20240110
  Transmission Date: 20240410
  Serious: Yes (Death, Other)
  Sender: FDA-Public Use
  Company Number: SE-ROCHE-3487787

PATIENT

DRUGS (8)
  1. RITUXIMAB [Suspect]
     Active Substance: RITUXIMAB
     Indication: Prophylaxis against transplant rejection
     Route: 042
  2. MYCOPHENOLATE MOFETIL [Suspect]
     Active Substance: MYCOPHENOLATE MOFETIL
     Indication: Prophylaxis against transplant rejection
     Route: 065
  3. METHYLPREDNISOLONE [Suspect]
     Active Substance: METHYLPREDNISOLONE
     Indication: Prophylaxis against transplant rejection
     Dosage: BOLUS AT A DOSE OF 500 MG FOR 3 DAYS.
     Route: 042
  4. THYMOCYTE IMMUNE GLOBULIN NOS [Suspect]
     Active Substance: THYMOCYTE IMMUNE GLOBULIN NOS
     Indication: Prophylaxis against transplant rejection
     Dosage: IF NOT CONTRAINDICATED, THE TOTAL DOSE BEING 2-6 MG/KG IV DIVIDED OVER 3-6 DAYS.
     Route: 042
  5. PREDNISOLONE [Suspect]
     Active Substance: PREDNISOLONE
     Indication: Prophylaxis against transplant rejection
     Route: 048
  6. EVEROLIMUS [Suspect]
     Active Substance: EVEROLIMUS
     Indication: Prophylaxis against transplant rejection
     Dosage: AND THEREAFTER ADJUSTED TO REACH TROUGH LEVELS OF 3-5 NG/ML.
     Route: 065
  7. TACROLIMUS [Suspect]
     Active Substance: TACROLIMUS
     Indication: Prophylaxis against transplant rejection
     Dosage: DOSE WAS DECREASED TO MAINTAIN TROUGH LEVELS OF APPROXIMATELY 5 - 1 NG/ML,
     Route: 065
  8. CYCLOSPORINE [Suspect]
     Active Substance: CYCLOSPORINE
     Indication: Prophylaxis against transplant rejection
     Route: 065

REACTIONS (32)
  - Meningoencephalitis herpetic [Fatal]
  - Sepsis [Unknown]
  - Urosepsis [Unknown]
  - Skin cancer [Unknown]
  - Pulmonary embolism [Unknown]
  - Herpes zoster meningoencephalitis [Unknown]
  - Rectal cancer [Unknown]
  - Cytopenia [Unknown]
  - Pneumonia [Unknown]
  - Pneumocystis jirovecii infection [Unknown]
  - Device related infection [Unknown]
  - Gastroenteritis salmonella [Unknown]
  - Clostridium difficile infection [Unknown]
  - Influenza [Unknown]
  - Varicella zoster virus infection [Unknown]
  - Herpes zoster [Unknown]
  - Herpes simplex [Unknown]
  - Norovirus infection [Unknown]
  - Cytomegalovirus infection [Unknown]
  - BK virus infection [Unknown]
  - Anaemia [Unknown]
  - Infection [Unknown]
  - Leukopenia [Unknown]
  - Thrombocytopenia [Unknown]
  - Albuminuria [Unknown]
  - Deep vein thrombosis [Unknown]
  - Vomiting [Unknown]
  - Nausea [Unknown]
  - Interstitial lung disease [Unknown]
  - Transaminases increased [Unknown]
  - Nephrotic syndrome [Unknown]
  - Fatigue [Unknown]
